FAERS Safety Report 7645835-7 (Version None)
Quarter: 2011Q3

REPORT INFORMATION
  Report Type: 
  Country: None (occurrence: None)
  Receive Date: 20110729
  Receipt Date: 20110715
  Transmission Date: 20111222
  Serious: Yes (Other)
  Sender: FDA-Public Use
  Company Number: PHHY2011US49290

PATIENT
  Sex: Male

DRUGS (12)
  1. EXFORGE [Suspect]
     Dosage: 1 DF, QD
  2. METFORMIN HCL [Concomitant]
  3. ASPIRIN [Concomitant]
  4. ALPRENOLOL [Concomitant]
  5. LOSARTAN POTASSIUM [Concomitant]
  6. CADUET [Concomitant]
  7. LOTENSIN HCT [Suspect]
     Dosage: 1 DF, QD
  8. VYTORIN [Concomitant]
  9. TERAZOSIN HCL [Concomitant]
  10. ZOCOR [Concomitant]
  11. COLCHICINE [Concomitant]
  12. METOPROLOL TARTRATE [Concomitant]

REACTIONS (4)
  - BLOOD PRESSURE INADEQUATELY CONTROLLED [None]
  - HYPERTENSION [None]
  - INTERVERTEBRAL DISC PROTRUSION [None]
  - DRUG INEFFECTIVE [None]
